FAERS Safety Report 18791097 (Version 1)
Quarter: 2021Q1

REPORT INFORMATION
  Report Type: Spontaneous
  Country: US (occurrence: US)
  Receive Date: 20210126
  Receipt Date: 20210126
  Transmission Date: 20210419
  Serious: No
  Sender: FDA-Public Use
  Company Number: US-MYLANLABS-2021M1002861

PATIENT
  Age: 8 Year
  Sex: Male
  Weight: 30 kg

DRUGS (2)
  1. CLONIDINE TRANSDERMAL SYSTEM [Suspect]
     Active Substance: CLONIDINE
     Indication: AFFECTIVE DISORDER
  2. CLONIDINE TRANSDERMAL SYSTEM [Suspect]
     Active Substance: CLONIDINE
     Indication: ATTENTION DEFICIT HYPERACTIVITY DISORDER
     Dosage: 0.1 MILLIGRAM, QD
     Route: 062
     Dates: start: 202011

REACTIONS (8)
  - Application site pruritus [Unknown]
  - Hypersensitivity [Unknown]
  - Application site irritation [Unknown]
  - Rash [Recovered/Resolved]
  - Application site erythema [Unknown]
  - Application site burn [Recovered/Resolved]
  - Application site inflammation [Unknown]
  - Off label use [Unknown]

NARRATIVE: CASE EVENT DATE: 202011
